FAERS Safety Report 7902741 (Version 2)
Quarter: 2013Q2

REPORT INFORMATION
  Report Type: Report from Study
  Country: FR (occurrence: FR)
  Receive Date: 20110418
  Receipt Date: 20130426
  Transmission Date: 20140414
  Serious: Yes (Hospitalization)
  Sender: FDA-Public Use
  Company Number: FR-ROCHE-770523

PATIENT
  Age: 62 Year
  Sex: Female

DRUGS (4)
  1. PEG-INTERFERON ALFA 2A [Suspect]
     Indication: HEPATITIS C
     Route: 058
     Dates: start: 20100607, end: 20110331
  2. RIBAVIRIN [Suspect]
     Indication: HEPATITIS C
     Route: 048
  3. EPOETIN BETA [Suspect]
     Indication: PRODUCT USED FOR UNKNOWN INDICATION
     Dosage: EVERY OTHER WEEK
     Route: 065
  4. NEUPOGEN [Concomitant]
     Dosage: TOTAL DAILY DOSE: 30 MU
     Route: 065

REACTIONS (1)
  - Syncope [Recovered/Resolved]
